FAERS Safety Report 4878639-9 (Version None)
Quarter: 2005Q4

REPORT INFORMATION
  Report Type: 
  Country: None (occurrence: None)
  Receive Date: 20051214
  Receipt Date: 20050328
  Transmission Date: 20060501
  Serious: Yes (Hospitalization)
  Sender: FDA-Public Use
  Company Number: D-05-011

PATIENT
  Age: 77 Year
  Sex: Female
  Weight: 89.8122 kg

DRUGS (11)
  1. COUMADIN [Suspect]
     Indication: ANTICOAGULANT THERAPY
     Dosage: 2.5 MG QOD PO
     Route: 048
     Dates: start: 20050307, end: 20050324
  2. JANTOVEN [Suspect]
     Indication: ANTICOAGULANT THERAPY
     Dosage: 5 MG QOD PO
     Route: 048
     Dates: start: 20050307, end: 20050324
  3. COUMADIN [Suspect]
     Indication: ANTICOAGULANT THERAPY
     Dosage: 2.5 MG QD PO
     Route: 048
  4. LISINOPRIL (CONTIN) [Concomitant]
  5. FUROSEMIDE (CONTIN) [Concomitant]
  6. GLYBURIDE (CONTIN) [Concomitant]
  7. FERROUS SULFATE (CONTIN) [Concomitant]
  8. LIPITOR (CONTIN) [Concomitant]
  9. TRICOR (CONTIN) [Concomitant]
  10. DIGOXIN (CONTIN) [Concomitant]
  11. COREG (CONTIN) [Concomitant]

REACTIONS (2)
  - GASTROINTESTINAL HAEMORRHAGE [None]
  - INTERNATIONAL NORMALISED RATIO INCREASED [None]
